FAERS Safety Report 4635509-9 (Version None)
Quarter: 2005Q2

REPORT INFORMATION
  Report Type: 
  Country: None (occurrence: None)
  Receive Date: 20050414
  Receipt Date: 20050405
  Transmission Date: 20051028
  Serious: No
  Sender: FDA-Public Use
  Company Number: TAP2005Q00561

PATIENT
  Age: 75 Year
  Sex: Female
  Weight: 51.7101 kg

DRUGS (4)
  1. PREVACID [Suspect]
     Indication: GASTROOESOPHAGEAL REFLUX DISEASE
     Dosage: 30 MG, 1 IN 1 D, PER ORAL
     Route: 048
     Dates: start: 20040101
  2. PREVACID [Suspect]
     Indication: HIATUS HERNIA
     Dosage: 30 MG, 1 IN 1 D, PER ORAL
     Route: 048
     Dates: start: 20040101
  3. LEVOXYL [Concomitant]
  4. MICARDIS [Concomitant]

REACTIONS (2)
  - ABDOMINAL NEOPLASM [None]
  - HERPES ZOSTER [None]
